FAERS Safety Report 10255450 (Version 2)
Quarter: 2014Q2

REPORT INFORMATION
  Report Type: Report from Study
  Country: AU (occurrence: AU)
  Receive Date: 20140624
  Receipt Date: 20140624
  Transmission Date: 20141212
  Serious: Yes (Hospitalization, Other)
  Sender: FDA-Public Use
  Company Number: AU-PFIZER INC-HQWYE079019DEC05

PATIENT
  Age: 75 Year
  Sex: Female
  Weight: 65 kg

DRUGS (11)
  1. TEMSIROLIMUS [Suspect]
     Indication: BREAST CANCER METASTATIC
     Dosage: 30 MG, DAILY
     Route: 048
     Dates: start: 20050818
  2. LETROZOLE [Suspect]
     Indication: BREAST CANCER METASTATIC
     Dosage: 2.5 MG, 1X/DAY
     Route: 048
     Dates: start: 20050818
  3. CARBIMAZOLE [Concomitant]
     Dosage: UNK
     Route: 048
     Dates: start: 20051101
  4. METOCLOPRAMIDE [Concomitant]
     Dosage: UNK
     Route: 048
     Dates: start: 20050904
  5. MORPHINE MIXTURE [Concomitant]
     Dosage: UNK
     Route: 048
     Dates: start: 20050816
  6. PANAMAX [Concomitant]
     Dosage: UNK
     Route: 048
     Dates: start: 20050831
  7. PREDNISOLONE [Concomitant]
     Dosage: UNK
     Route: 048
     Dates: start: 20050720
  8. VENTOLIN [Concomitant]
     Dosage: UNK
     Route: 055
     Dates: start: 1998
  9. SIMVASTATIN [Concomitant]
     Dosage: UNK
     Route: 048
     Dates: start: 1999
  10. TEMAZEPAM [Concomitant]
     Dosage: UNK
     Route: 048
     Dates: start: 20050812
  11. SPIRIVA [Concomitant]
     Dosage: UNK
     Route: 055
     Dates: start: 2004

REACTIONS (1)
  - Pneumonia [Recovered/Resolved]
